FAERS Safety Report 6807964-7 (Version None)
Quarter: 2010Q2

REPORT INFORMATION
  Report Type: 
  Country: None (occurrence: None)
  Receive Date: 20100629
  Receipt Date: 20090604
  Transmission Date: 20101027
  Serious: No
  Sender: FDA-Public Use
  Company Number: US-PFIZER INC-2009153742

PATIENT
  Sex: Male
  Weight: 99.8 kg

DRUGS (3)
  1. XANAX XR [Suspect]
     Indication: STRESS
     Dosage: 0.5 MG, 1X/DAY
     Route: 048
     Dates: start: 20090103
  2. LOPID [Concomitant]
  3. ZOCOR [Concomitant]

REACTIONS (2)
  - DRUG INEFFECTIVE [None]
  - FEELING ABNORMAL [None]
